FAERS Safety Report 20221462 (Version 7)
Quarter: 2022Q4

REPORT INFORMATION
  Report Type: Spontaneous
  Country: US (occurrence: None)
  Receive Date: 20211223
  Receipt Date: 20221111
  Transmission Date: 20230112
  Serious: Yes (Other)
  Sender: FDA-Public Use
  Company Number: 2021A892418

PATIENT
  Age: 71 Year
  Sex: Female
  Weight: 72.6 kg

DRUGS (4)
  1. NEXIUM [Suspect]
     Active Substance: ESOMEPRAZOLE MAGNESIUM
     Indication: Gastric disorder
     Dosage: 1 DF(2 TO 3 TIMES A DAY)
     Route: 048
     Dates: start: 1997
  2. PRILOSEC [Suspect]
     Active Substance: OMEPRAZOLE MAGNESIUM
     Indication: Gastrooesophageal reflux disease
     Dosage: 1 DF (2 TO 3 TIMES)
     Route: 065
     Dates: start: 2002
  3. PRILOSEC [Suspect]
     Active Substance: OMEPRAZOLE MAGNESIUM
     Indication: Gastric disorder
     Dosage: 1 DF (2 TO 3 TIMES)
     Route: 065
     Dates: start: 2002
  4. METFORMIN [Concomitant]
     Active Substance: METFORMIN HYDROCHLORIDE

REACTIONS (14)
  - Nephrolithiasis [Unknown]
  - Chronic kidney disease [Not Recovered/Not Resolved]
  - Renal failure [Not Recovered/Not Resolved]
  - Incorrect product administration duration [Unknown]
  - Renal pain [Unknown]
  - Illness [Unknown]
  - Inappropriate schedule of product administration [Unknown]
  - Blood cholesterol increased [Unknown]
  - Thyroid disorder [Unknown]
  - Urinary incontinence [Unknown]
  - Dementia [Recovered/Resolved]
  - Hearing disability [Recovered/Resolved]
  - Reflux gastritis [Not Recovered/Not Resolved]
  - Nephrolithiasis [Not Recovered/Not Resolved]
